FAERS Safety Report 12279815 (Version 4)
Quarter: 2017Q2

REPORT INFORMATION
  Report Type: Report from Study
  Country: US (occurrence: US)
  Receive Date: 20160418
  Receipt Date: 20170523
  Transmission Date: 20170830
  Serious: Yes (Hospitalization)
  Sender: FDA-Public Use
  Company Number: US-ACTELION-A-US2016-134399

PATIENT
  Age: 62 Year
  Sex: Male

DRUGS (9)
  1. CORGARD [Concomitant]
     Active Substance: NADOLOL
     Dosage: 40 MG, QPM
  2. ALDACTONE [Concomitant]
     Active Substance: SPIRONOLACTONE
  3. CEPHULAC [Concomitant]
     Active Substance: LACTULOSE
     Dosage: 10 G/15 ML
     Route: 048
  4. ZYRTEC [Concomitant]
     Active Substance: CETIRIZINE HYDROCHLORIDE
  5. CELEXA [Concomitant]
     Active Substance: CITALOPRAM HYDROBROMIDE
  6. OPSUMIT [Suspect]
     Active Substance: MACITENTAN
     Indication: PULMONARY ARTERIAL HYPERTENSION
     Dosage: 10 MG, QD
     Route: 048
     Dates: start: 20140707
  7. LASIX [Concomitant]
     Active Substance: FUROSEMIDE
  8. JANUVIA [Concomitant]
     Active Substance: SITAGLIPTIN PHOSPHATE
  9. VIAGRA [Concomitant]
     Active Substance: SILDENAFIL CITRATE
     Dosage: 500 MG, QD
     Route: 048

REACTIONS (10)
  - Coma [Recovered/Resolved]
  - Pneumonia aspiration [Recovered/Resolved]
  - Cholelithiasis [Recovered/Resolved]
  - Encephalopathy [Recovered/Resolved]
  - Loss of consciousness [Recovered/Resolved]
  - Mechanical ventilation [Recovered/Resolved]
  - Shoulder operation [Unknown]
  - Seizure like phenomena [Recovered/Resolved]
  - Fall [Unknown]
  - Upper limb fracture [Unknown]

NARRATIVE: CASE EVENT DATE: 201604
